FAERS Safety Report 9930823 (Version 2)
Quarter: 2014Q1

REPORT INFORMATION
  Report Type: Spontaneous
  Country: US (occurrence: US)
  Receive Date: 20140227
  Receipt Date: 20140319
  Transmission Date: 20141002
  Serious: Yes (Hospitalization)
  Sender: FDA-Public Use
  Company Number: US-GILEAD-2014-0095482

PATIENT
  Sex: Female

DRUGS (4)
  1. LETAIRIS [Suspect]
     Indication: PRODUCT USED FOR UNKNOWN INDICATION
     Dosage: 10 MG, QD
     Route: 048
     Dates: start: 20100923
  2. LETAIRIS [Suspect]
     Dosage: 10 MG, QD
     Dates: start: 20080408
  3. REVATIO [Concomitant]
  4. WARFARIN [Concomitant]

REACTIONS (2)
  - Asthma [Unknown]
  - Oxygen saturation decreased [Unknown]
